FAERS Safety Report 4264992-6 (Version None)
Quarter: 2004Q1

REPORT INFORMATION
  Report Type: 
  Country: None (occurrence: None)
  Receive Date: 20040106
  Receipt Date: 20031201
  Transmission Date: 20041129
  Serious: Yes (Death, Other)
  Sender: FDA-Public Use
  Company Number: WAES 0312USA00251

PATIENT
  Age: 62 Year
  Sex: Male

DRUGS (11)
  1. PRIMAXIN [Suspect]
     Route: 042
     Dates: start: 20031119, end: 20031130
  2. CLINDAMYCIN PHOSPHATE [Suspect]
     Route: 042
     Dates: start: 20031124, end: 20031128
  3. DIAZEPAM [Suspect]
     Route: 041
     Dates: start: 20031124, end: 20031130
  4. DOPAMINE HYDROCHLORIDE [Concomitant]
     Dates: start: 20031124, end: 20031216
  5. ERYTHROMYCIN LACTOBIONATE [Suspect]
     Route: 042
     Dates: start: 20031119, end: 20031128
  6. PEPCID [Concomitant]
     Indication: GASTRIC ULCER
     Dates: start: 20031124, end: 20031220
  7. LEVOFLOXACIN [Suspect]
     Route: 048
     Dates: start: 20031119, end: 20031123
  8. PANCURONIUM BROMIDE [Suspect]
     Indication: HYPOTONIA
     Route: 042
     Dates: start: 20031125, end: 20031130
  9. PREDNISOLONE SODIUM SUCCINATE [Concomitant]
     Dates: start: 20031125, end: 20031202
  10. PREDNISOLONE SODIUM SUCCINATE [Concomitant]
     Dates: start: 20031206, end: 20031210
  11. VECURONIUM BROMIDE [Suspect]
     Indication: HYPOTONIA
     Route: 042
     Dates: start: 20031124, end: 20031125

REACTIONS (4)
  - BLOOD CREATININE DECREASED [None]
  - BLOOD UREA DECREASED [None]
  - POLYURIA [None]
  - RESPIRATORY FAILURE [None]
